FAERS Safety Report 5640344-9 (Version None)
Quarter: 2008Q1

REPORT INFORMATION
  Report Type: 
  Country: None (occurrence: None)
  Receive Date: 20080227
  Receipt Date: 20080104
  Transmission Date: 20080703
  Serious: No
  Sender: FDA-Public Use
  Company Number: US-BAXTER-2008BH000201

PATIENT
  Age: 23 Year
  Sex: Female
  Weight: 46 kg

DRUGS (8)
  1. HEPARIN SODIUM [Suspect]
     Indication: PROPHYLAXIS
     Route: 010
     Dates: start: 20071210, end: 20071210
  2. HEPARIN SODIUM [Suspect]
     Route: 010
     Dates: start: 20071210, end: 20071210
  3. HEPARIN SODIUM [Suspect]
     Route: 010
     Dates: start: 20071210, end: 20071210
  4. HEPARIN SODIUM [Suspect]
     Route: 010
     Dates: start: 20071210, end: 20071210
  5. HEPARIN SODIUM [Suspect]
     Route: 010
     Dates: start: 20071210, end: 20071210
  6. HEPARIN SODIUM [Suspect]
     Route: 010
     Dates: start: 20071210, end: 20071210
  7. HEPARIN SODIUM [Suspect]
     Route: 010
     Dates: start: 20071210, end: 20071210
  8. SODIUM CHLORIDE INJ [Concomitant]
     Indication: DRUG USE FOR UNKNOWN INDICATION
     Dosage: DOSE UNIT:UNKNOWN
     Route: 010
     Dates: start: 20071201, end: 20071201

REACTIONS (3)
  - COUGH [None]
  - DYSPNOEA [None]
  - OCULAR HYPERAEMIA [None]
